FAERS Safety Report 8385874-4 (Version None)
Quarter: 2012Q2

REPORT INFORMATION
  Report Type: 
  Country: None (occurrence: None)
  Receive Date: 20120525
  Receipt Date: 20120515
  Transmission Date: 20120825
  Serious: Yes (Hospitalization)
  Sender: FDA-Public Use
  Company Number: IN-US-EMD SERONO, INC.-7134628

PATIENT
  Age: 67 Year
  Sex: Female
  Weight: 50 kg

DRUGS (1)
  1. REBIF [Suspect]
     Indication: MULTIPLE SCLEROSIS
     Route: 058
     Dates: start: 20101101, end: 20120504

REACTIONS (3)
  - FULL BLOOD COUNT DECREASED [None]
  - DECUBITUS ULCER [None]
  - MULTIPLE SCLEROSIS RELAPSE [None]
